FAERS Safety Report 23903473 (Version 1)
Quarter: 2024Q2

REPORT INFORMATION
  Report Type: Report from Study
  Country: US (occurrence: US)
  Receive Date: 20240527
  Receipt Date: 20240527
  Transmission Date: 20240716
  Serious: Yes (Other)
  Sender: FDA-Public Use
  Company Number: US-ARGENX-2023-ARGX-US001248

PATIENT

DRUGS (1)
  1. VYVGART [Suspect]
     Active Substance: EFGARTIGIMOD ALFA-FCAB
     Indication: Myasthenia gravis
     Dosage: 10 MG/KG
     Route: 042
     Dates: start: 20220830

REACTIONS (23)
  - Autoimmune disorder [Unknown]
  - Wrist fracture [Unknown]
  - Fall [Recovered/Resolved]
  - Therapy interrupted [Unknown]
  - Jaw clicking [Unknown]
  - Asthenia [Unknown]
  - Muscular weakness [Unknown]
  - Cardiac valve disease [Unknown]
  - Dysphonia [Unknown]
  - Dry eye [Unknown]
  - Balance disorder [Unknown]
  - Asthenia [Unknown]
  - Abdominal discomfort [Unknown]
  - Weight decreased [Recovering/Resolving]
  - Malaise [Unknown]
  - Asthenia [Unknown]
  - Dysphonia [Recovering/Resolving]
  - Limb discomfort [Recovering/Resolving]
  - Fatigue [Unknown]
  - COVID-19 [Unknown]
  - Viral infection [Unknown]
  - Therapeutic product effect decreased [Unknown]
  - Gait disturbance [Recovering/Resolving]

NARRATIVE: CASE EVENT DATE: 20230408
